FAERS Safety Report 9031316 (Version 2)
Quarter: 2013Q1

REPORT INFORMATION
  Report Type: Spontaneous
  Country: JP (occurrence: JP)
  Receive Date: 20130124
  Receipt Date: 20130222
  Transmission Date: 20140127
  Serious: Yes (Other)
  Sender: FDA-Public Use
  Company Number: JP-PFIZER INC-2013028516

PATIENT
  Age: 80 Year
  Sex: Female

DRUGS (1)
  1. PIPERACILLIN/TAZOBACTAM [Suspect]
     Dosage: 9 G, DAILY
     Route: 041
     Dates: start: 20121211, end: 20121212

REACTIONS (1)
  - Haemorrhage subcutaneous [Recovered/Resolved]
